FAERS Safety Report 14483912 (Version 1)
Quarter: 2018Q1

REPORT INFORMATION
  Report Type: Spontaneous
  Country: GB (occurrence: GB)
  Receive Date: 20180205
  Receipt Date: 20180205
  Transmission Date: 20180509
  Serious: Yes (Other)
  Sender: FDA-Public Use
  Company Number: GB-CONCORDIA PHARMACEUTICALS INC.-E2B_00009697

PATIENT
  Age: 36 Year
  Sex: Female
  Weight: 97.06 kg

DRUGS (2)
  1. PREDNISOLONE. [Suspect]
     Active Substance: PREDNISOLONE
     Dosage: EVERY MORNING
     Route: 048
     Dates: start: 20171108, end: 20171114
  2. CITALOPRAM HYDROBROMIDE. [Concomitant]
     Active Substance: CITALOPRAM HYDROBROMIDE

REACTIONS (4)
  - Blood pressure increased [Recovered/Resolved with Sequelae]
  - Disorientation [Unknown]
  - Headache [Recovered/Resolved with Sequelae]
  - Head discomfort [Recovered/Resolved with Sequelae]

NARRATIVE: CASE EVENT DATE: 20171108
